FAERS Safety Report 9298254 (Version 1)
Quarter: 2013Q2

REPORT INFORMATION
  Report Type: Spontaneous
  Country: FR (occurrence: FR)
  Receive Date: 20130520
  Receipt Date: 20130520
  Transmission Date: 20140414
  Serious: Yes (Other)
  Sender: FDA-Public Use
  Company Number: FR-ROCHE-1226000

PATIENT
  Sex: Female

DRUGS (1)
  1. AVASTIN [Suspect]
     Indication: OVARIAN CANCER
     Route: 065

REACTIONS (3)
  - Intestinal infarction [Unknown]
  - Intestinal ischaemia [Unknown]
  - Peritonitis [Unknown]
